FAERS Safety Report 6204381-8 (Version None)
Quarter: 2009Q2

REPORT INFORMATION
  Report Type: 
  Country: None (occurrence: None)
  Receive Date: 20090522
  Receipt Date: 20090520
  Transmission Date: 20091009
  Serious: Yes (Other)
  Sender: FDA-Public Use
  Company Number: 2009SP008913

PATIENT
  Age: 84 Year
  Sex: Female

DRUGS (1)
  1. TEMODAR [Suspect]
     Indication: DRUG USE FOR UNKNOWN INDICATION
     Dosage: 360 MG; ONCE; PO
     Route: 048

REACTIONS (1)
  - CEREBRAL HAEMORRHAGE [None]
